FAERS Safety Report 5805788-0 (Version None)
Quarter: 2008Q3

REPORT INFORMATION
  Report Type: 
  Country: None (occurrence: None)
  Receive Date: 20080710
  Receipt Date: 20080707
  Transmission Date: 20090109
  Serious: Yes (Hospitalization, Other)
  Sender: FDA-Public Use
  Company Number: US-ASTRAZENECA-2008UW13558

PATIENT
  Sex: Male

DRUGS (2)
  1. SEROQUEL XR [Suspect]
     Route: 048
  2. PRISTIQ [Suspect]

REACTIONS (4)
  - CONFUSIONAL STATE [None]
  - NIGHT SWEATS [None]
  - PSYCHIATRIC DECOMPENSATION [None]
  - TEMPERATURE INTOLERANCE [None]
